FAERS Safety Report 8874214 (Version 1)
Quarter: 2012Q4

REPORT INFORMATION
  Report Type: Report from Study
  Country: BE (occurrence: BE)
  Receive Date: 20121030
  Receipt Date: 20121030
  Transmission Date: 20130627
  Serious: Yes (Hospitalization)
  Sender: FDA-Public Use
  Company Number: BE-ABBOTT-12P-013-1001045-00

PATIENT
  Sex: Male
  Weight: 84 kg

DRUGS (3)
  1. HUMIRA [Suspect]
     Indication: PSORIATIC ARTHROPATHY
     Route: 058
     Dates: start: 20090609
  2. FELDENE [Concomitant]
     Indication: PRODUCT USED FOR UNKNOWN INDICATION
  3. LEDERTREXATE [Concomitant]
     Indication: ARTHRITIS
     Dates: end: 201204

REACTIONS (1)
  - Nasal septum deviation [Recovering/Resolving]
